FAERS Safety Report 9012862 (Version 1)
Quarter: 2013Q1

REPORT INFORMATION
  Report Type: Spontaneous
  Country: US (occurrence: US)
  Receive Date: 20130114
  Receipt Date: 20130114
  Transmission Date: 20140127
  Serious: Yes (Hospitalization)
  Sender: FDA-Public Use
  Company Number: US-009507513-1301XAA003544

PATIENT
  Age: 45 Year
  Sex: Female

DRUGS (9)
  1. SINGULAIR [Suspect]
     Dosage: UNK
  2. VENTOLIN (ALBUTEROL) [Suspect]
  3. PRAZEPAM [Suspect]
     Dosage: 40 MG, UNK
     Route: 048
  4. ANAFRANIL [Suspect]
     Dosage: 75 MG, UNK
     Route: 048
  5. CLONAZEPAM [Suspect]
     Route: 048
  6. ATHYMIL [Suspect]
     Dosage: 30 MG, UNK
     Route: 048
  7. TEGRETOL [Suspect]
     Dosage: 400 MG, UNK
     Route: 048
  8. XYZAL [Suspect]
     Route: 048
  9. ATARAX (ALPRAZOLAM) [Suspect]
     Dosage: 25 MG, UNK
     Route: 048

REACTIONS (1)
  - Hepatitis [Unknown]
